FAERS Safety Report 19244447 (Version 2)
Quarter: 2021Q2

REPORT INFORMATION
  Report Type: Spontaneous
  Country: GB (occurrence: GB)
  Receive Date: 20210511
  Receipt Date: 20210519
  Transmission Date: 20210717
  Serious: Yes (Other)
  Sender: FDA-Public Use
  Company Number: GB-MYLANLABS-2021M1027082

PATIENT
  Sex: Female

DRUGS (1)
  1. CLOZARIL [Suspect]
     Active Substance: CLOZAPINE
     Indication: SCHIZOPHRENIA
     Dosage: UNK
     Route: 048
     Dates: start: 20010701

REACTIONS (8)
  - Metabolic acidosis [Unknown]
  - Product dose omission issue [Unknown]
  - Diarrhoea [Unknown]
  - Circulatory collapse [Unknown]
  - Cognitive disorder [Unknown]
  - Nausea [Unknown]
  - Loss of consciousness [Unknown]
  - Treatment noncompliance [Unknown]
